FAERS Safety Report 4718141-8 (Version None)
Quarter: 2005Q3

REPORT INFORMATION
  Report Type: 
  Country: None (occurrence: None)
  Receive Date: 20050718
  Receipt Date: 20050718
  Transmission Date: 20060218
  Serious: Yes (Life-Threatening, Hospitalization)
  Sender: FDA-Public Use
  Company Number: None

PATIENT
  Age: 36 Year
  Sex: Male

DRUGS (22)
  1. ASPART INSULIN [Suspect]
     Dosage: 10 UNITS SC QAC
     Route: 058
     Dates: start: 20050423, end: 20050423
  2. NPH INSULIN [Suspect]
     Dosage: 25 UNIT SC AM 15 UNITS SC PM
     Route: 058
  3. KUSORI [Concomitant]
  4. MAALOX [Concomitant]
  5. SELENIUM SULFATE SHAMPOO [Concomitant]
  6. HYDRALAZINE [Concomitant]
  7. ISDN [Concomitant]
  8. NEOSPORIN [Concomitant]
  9. KETOCONAZOLE [Concomitant]
  10. IRBESARTAN [Concomitant]
  11. ENALAPRIL [Concomitant]
  12. ASPIRIN [Concomitant]
  13. OMEPRAZOLE [Concomitant]
  14. FELODIPINE [Concomitant]
  15. IRON SULFATETHIAMIN COMPOUND TAB [Concomitant]
  16. DARBEPOETIN [Concomitant]
  17. SIMVASTATIN [Concomitant]
  18. DILTIAZEM [Concomitant]
  19. METOPROLOL [Concomitant]
  20. SEVELAMER [Concomitant]
  21. PERCOCET [Concomitant]
  22. PHENERGAN [Concomitant]

REACTIONS (4)
  - DIABETES MELLITUS INADEQUATE CONTROL [None]
  - DYSARTHRIA [None]
  - HYPOGLYCAEMIA [None]
  - RENAL FAILURE CHRONIC [None]
